FAERS Safety Report 18589782 (Version 2)
Quarter: 2020Q4

REPORT INFORMATION
  Report Type: Spontaneous
  Country: US (occurrence: US)
  Receive Date: 20201208
  Receipt Date: 20201210
  Transmission Date: 20210114
  Serious: Yes (Other)
  Sender: FDA-Public Use
  Company Number: US-009507513-2012USA001238

PATIENT
  Sex: Female

DRUGS (1)
  1. KEYTRUDA [Suspect]
     Active Substance: PEMBROLIZUMAB
     Indication: HEAD AND NECK CANCER
     Dosage: 2MG/KG UNKNOWN FREQUENCY TOTAL OF 63 INFUSION
     Dates: start: 20120908, end: 20160602

REACTIONS (7)
  - Osteoporosis [Unknown]
  - Bone loss [Unknown]
  - Small intestine carcinoma recurrent [Recovered/Resolved]
  - Parathyroid disorder [Unknown]
  - Hypercalcaemia [Unknown]
  - Thyroidectomy [Unknown]
  - Feeling abnormal [Unknown]

NARRATIVE: CASE EVENT DATE: 2016
